FAERS Safety Report 5050826-9 (Version None)
Quarter: 2006Q3

REPORT INFORMATION
  Report Type: 
  Country: None (occurrence: None)
  Receive Date: 20060710
  Receipt Date: 20060628
  Transmission Date: 20061208
  Serious: Yes (Hospitalization)
  Sender: FDA-Public Use
  Company Number: GXKR2006PL03742

PATIENT
  Age: 18 Year
  Sex: Male

DRUGS (1)
  1. FLONIDAN (NGX) (LORATADINE) TABLET [Suspect]
     Indication: RHINITIS ALLERGIC
     Dosage: 10 MG, ORAL
     Route: 048

REACTIONS (4)
  - BLOODY DISCHARGE [None]
  - EPISTAXIS [None]
  - PETECHIAE [None]
  - THROMBOCYTOPENIA [None]
